FAERS Safety Report 16410888 (Version 1)
Quarter: 2019Q2

REPORT INFORMATION
  Report Type: Spontaneous
  Country: HU (occurrence: HU)
  Receive Date: 20190610
  Receipt Date: 20190610
  Transmission Date: 20190711
  Serious: Yes (Hospitalization)
  Sender: FDA-Public Use
  Company Number: HU-JNJFOC-20190610255

PATIENT
  Age: 45 Year

DRUGS (1)
  1. REMICADE [Suspect]
     Active Substance: INFLIXIMAB
     Indication: COLITIS ULCERATIVE
     Route: 042
     Dates: start: 20180510, end: 20190120

REACTIONS (1)
  - Immune-mediated pneumonitis [Recovered/Resolved]

NARRATIVE: CASE EVENT DATE: 20190101
